FAERS Safety Report 15181031 (Version 1)
Quarter: 2018Q3

REPORT INFORMATION
  Report Type: Spontaneous
  Country: US (occurrence: US)
  Receive Date: 20180723
  Receipt Date: 20180723
  Transmission Date: 20181010
  Serious: No
  Sender: FDA-Public Use
  Company Number: US-009507513-1310USA015434

PATIENT
  Age: 25 Year
  Sex: Female

DRUGS (5)
  1. PREZISTA [Suspect]
     Active Substance: DARUNAVIR ETHANOLATE
     Dosage: UNK
     Route: 048
     Dates: start: 20111018
  2. TRUVADA [Suspect]
     Active Substance: EMTRICITABINE\TENOFOVIR DISOPROXIL FUMARATE
     Dosage: TOTAL DIALY DOSE 1 TAB/CAPS
     Route: 048
     Dates: start: 20111018
  3. NORVIR [Suspect]
     Active Substance: RITONAVIR
     Dosage: UNK
     Route: 048
     Dates: start: 20111018
  4. RETROVIR [Suspect]
     Active Substance: ZIDOVUDINE
     Dosage: UNK
     Dates: start: 20111026
  5. ISENTRESS [Suspect]
     Active Substance: RALTEGRAVIR POTASSIUM
     Dosage: UNK
     Route: 048
     Dates: start: 20111018

REACTIONS (1)
  - Maternal exposure during pregnancy [Recovered/Resolved]
